FAERS Safety Report 14898716 (Version 3)
Quarter: 2018Q2

REPORT INFORMATION
  Report Type: Report from Study
  Country: US (occurrence: US)
  Receive Date: 20180515
  Receipt Date: 20180529
  Transmission Date: 20180711
  Serious: Yes (Hospitalization)
  Sender: FDA-Public Use
  Company Number: US-ACTELION-A-US2017-160071

PATIENT
  Age: 34 Year
  Sex: Female
  Weight: 106.12 kg

DRUGS (10)
  1. REVATIO [Concomitant]
     Active Substance: SILDENAFIL CITRATE
     Indication: PRODUCT USED FOR UNKNOWN INDICATION
     Dosage: UNK
     Route: 065
     Dates: start: 20170919
  2. ULTRAN [Concomitant]
     Active Substance: PHENAGLYCODOL
  3. VELETRI [Suspect]
     Active Substance: EPOPROSTENOL
     Dosage: 21.5 NG/KG, PER MIN
     Route: 042
  4. VELETRI [Suspect]
     Active Substance: EPOPROSTENOL
     Dosage: 37 NG/KG, PER MIN
     Route: 042
     Dates: start: 20180430
  5. BUMEX [Concomitant]
     Active Substance: BUMETANIDE
     Dosage: UNK
  6. VELETRI [Suspect]
     Active Substance: EPOPROSTENOL
     Indication: PULMONARY ARTERIAL HYPERTENSION
     Dosage: 27.5 NG/KG, PER MIN
     Route: 042
     Dates: start: 20170210
  7. VELETRI [Suspect]
     Active Substance: EPOPROSTENOL
     Dosage: 24.5 NG/KG, PER MIN
     Route: 042
  8. OPSUMIT [Suspect]
     Active Substance: MACITENTAN
     Indication: PULMONARY ARTERIAL HYPERTENSION
     Dosage: 10 MG, QD
     Route: 048
     Dates: start: 20180227, end: 20180320
  9. VELETRI [Suspect]
     Active Substance: EPOPROSTENOL
     Dosage: 33 NG/KG, PER MIN
     Route: 042
  10. ALDACTONE [Concomitant]
     Active Substance: SPIRONOLACTONE
     Dosage: UNK

REACTIONS (26)
  - Dyspnoea exertional [Unknown]
  - Pain in jaw [Unknown]
  - Adverse event [Unknown]
  - Emotional disorder [Unknown]
  - Flatulence [Recovering/Resolving]
  - Incorrect dose administered [Unknown]
  - Intestinal perforation [Recovering/Resolving]
  - Oedema peripheral [Unknown]
  - Feeling abnormal [Unknown]
  - Upper respiratory tract congestion [Unknown]
  - Malaise [Unknown]
  - Fluid retention [Unknown]
  - Gastric disorder [Unknown]
  - Dyspnoea [Unknown]
  - Diverticulitis [Recovered/Resolved]
  - Headache [Unknown]
  - Diarrhoea [Unknown]
  - Nausea [Unknown]
  - Diverticulum [Recovering/Resolving]
  - Abscess intestinal [Recovering/Resolving]
  - Weight decreased [Unknown]
  - Colon operation [Recovered/Resolved]
  - Fatigue [Unknown]
  - Flushing [Unknown]
  - Rhinorrhoea [Unknown]
  - Abdominal distension [Recovering/Resolving]

NARRATIVE: CASE EVENT DATE: 20170919
